FAERS Safety Report 10729324 (Version 1)
Quarter: 2015Q1

REPORT INFORMATION
  Report Type: Spontaneous
  Country: US (occurrence: None)
  Receive Date: 20150120
  Receipt Date: 20150120
  Transmission Date: 20150721
  Serious: No
  Sender: FDA-Public Use
  Company Number: None

PATIENT
  Age: 64 Year
  Sex: Female
  Weight: 44.45 kg

DRUGS (1)
  1. LEVOFLAXIN [Suspect]
     Active Substance: LEVOFLOXACIN
     Indication: LUNG INFECTION
     Dosage: 500MG 1/DAY  ONCE DAILY  TAKEN BY MOUTH
     Route: 048
     Dates: start: 20141113, end: 20141122

REACTIONS (2)
  - Arthralgia [None]
  - Weight bearing difficulty [None]

NARRATIVE: CASE EVENT DATE: 20141123
